FAERS Safety Report 9451227 (Version 3)
Quarter: 2013Q4

REPORT INFORMATION
  Report Type: Spontaneous
  Country: JP (occurrence: JP)
  Receive Date: 20130809
  Receipt Date: 20131008
  Transmission Date: 20140711
  Serious: Yes (Hospitalization, Other)
  Sender: FDA-Public Use
  Company Number: JP-TEVA-422443ISR

PATIENT
  Age: 82 Year
  Sex: Male
  Weight: 32.4 kg

DRUGS (3)
  1. ROZECLART [Suspect]
     Indication: PNEUMONIA
     Dosage: 2 GRAM DAILY;
     Route: 041
     Dates: start: 20130710, end: 20130717
  2. AMIGRAND [Concomitant]
     Indication: MEDICAL DIET
     Dosage: 1500 ML DAILY;
     Route: 041
     Dates: start: 20130710
  3. AMIGRAND [Concomitant]
     Indication: PROPHYLAXIS AGAINST DEHYDRATION

REACTIONS (1)
  - Renal disorder [Recovering/Resolving]
